FAERS Safety Report 16470956 (Version 3)
Quarter: 2019Q3

REPORT INFORMATION
  Report Type: Report from Study
  Country: US (occurrence: US)
  Receive Date: 20190624
  Receipt Date: 20190801
  Transmission Date: 20191004
  Serious: Yes (Death, Other)
  Sender: FDA-Public Use
  Company Number: US-BRISTOL-MYERS SQUIBB COMPANY-BMS-2019-060728

PATIENT
  Sex: Male

DRUGS (2)
  1. NIVOLUMAB [Suspect]
     Active Substance: NIVOLUMAB
     Indication: MESOTHELIOMA MALIGNANT
     Dosage: 170 MILLIGRAM, Q2WK
     Route: 042
     Dates: start: 20180813
  2. YERVOY [Suspect]
     Active Substance: IPILIMUMAB
     Indication: MESOTHELIOMA MALIGNANT
     Dosage: 56.5 MILLIGRAM, EVERY 42 DAYS
     Route: 042
     Dates: start: 20180813

REACTIONS (1)
  - Death [Fatal]
